FAERS Safety Report 17289325 (Version 1)
Quarter: 2020Q1

REPORT INFORMATION
  Report Type: Spontaneous
  Country: CA (occurrence: CA)
  Receive Date: 20200120
  Receipt Date: 20200120
  Transmission Date: 20200409
  Serious: Yes (Hospitalization)
  Sender: FDA-Public Use
  Company Number: CA-SILVERGATE PHARMACEUTICALS, INC.-2020SIL00002

PATIENT
  Age: 34 Year
  Sex: Female

DRUGS (3)
  1. POTASSIUM CHLORIDE. [Concomitant]
     Active Substance: POTASSIUM CHLORIDE
     Route: 015
  2. NON-STEROIDAL ANTI-INFLAMMATORY DRUG [Suspect]
     Active Substance: UNSPECIFIED INGREDIENT
     Indication: TEMPOROMANDIBULAR JOINT SYNDROME
     Route: 065
  3. METHOTREXATE. [Suspect]
     Active Substance: METHOTREXATE
     Indication: PLACENTAL DISORDER
     Dosage: 2 DOSAGE UNITS
     Route: 065

REACTIONS (3)
  - Exposure during pregnancy [Recovered/Resolved]
  - Drug interaction [Recovered/Resolved]
  - Bone marrow failure [Recovered/Resolved]
